FAERS Safety Report 24284887 (Version 1)
Quarter: 2024Q3

REPORT INFORMATION
  Report Type: Spontaneous
  Country: JP (occurrence: JP)
  Receive Date: 20240905
  Receipt Date: 20240905
  Transmission Date: 20241016
  Serious: Yes (Other)
  Sender: Haleon PLC
  Company Number: JP-HALEON-2194618

PATIENT
  Age: 71 Year
  Sex: Male
  Weight: 90 kg

DRUGS (1)
  1. ORLISTAT [Suspect]
     Active Substance: ORLISTAT
     Indication: Obesity
     Route: 048
     Dates: start: 202405, end: 202408

REACTIONS (5)
  - Renal impairment [Unknown]
  - Interstitial lung disease [Unknown]
  - Blood test abnormal [Unknown]
  - Blood creatinine abnormal [Unknown]
  - KL-6 increased [Unknown]

NARRATIVE: CASE EVENT DATE: 20240815
